FAERS Safety Report 10050159 (Version 1)
Quarter: 2014Q1

REPORT INFORMATION
  Report Type: Spontaneous
  Country: US (occurrence: None)
  Receive Date: 20140331
  Receipt Date: 20140331
  Transmission Date: 20141002
  Serious: No
  Sender: FDA-Public Use
  Company Number: None

PATIENT
  Age: 31 Year
  Sex: Female
  Weight: 104.33 kg

DRUGS (1)
  1. MIRENA IUD [Suspect]
     Dates: start: 20140213

REACTIONS (14)
  - Constipation [None]
  - Anxiety [None]
  - Depression [None]
  - Alopecia [None]
  - Nausea [None]
  - Decreased appetite [None]
  - Dyspnoea [None]
  - Headache [None]
  - Chest discomfort [None]
  - Back pain [None]
  - Loss of libido [None]
  - Crying [None]
  - Panic attack [None]
  - Emotional disorder [None]
